FAERS Safety Report 6486664-X (Version None)
Quarter: 2009Q4

REPORT INFORMATION
  Report Type: 
  Country: None (occurrence: None)
  Receive Date: 20091210
  Receipt Date: 20091124
  Transmission Date: 20100525
  Serious: Yes (Other)
  Sender: FDA-Public Use
  Company Number: IT-BAYER-200941644GPV

PATIENT
  Age: 37 Year
  Sex: Female

DRUGS (2)
  1. INTERFERON BETA-1B [Suspect]
     Indication: MULTIPLE SCLEROSIS
  2. AZATHIOPRINE [Concomitant]
     Indication: PSORIASIS

REACTIONS (9)
  - ARTHRALGIA [None]
  - HYPOAESTHESIA [None]
  - JOINT SWELLING [None]
  - MOVEMENT DISORDER [None]
  - NO ADVERSE EVENT [None]
  - PARAPARESIS [None]
  - PSORIASIS [None]
  - PSORIATIC ARTHROPATHY [None]
  - TENOSYNOVITIS [None]
